FAERS Safety Report 16463970 (Version 1)
Quarter: 2019Q3

REPORT INFORMATION
  Report Type: Spontaneous
  Country: US (occurrence: US)
  Receive Date: 20190620
  Receipt Date: 20190620
  Transmission Date: 20191004
  Serious: Yes (Hospitalization)
  Sender: FDA-Public Use
  Company Number: None

PATIENT
  Sex: Female

DRUGS (7)
  1. ROPINIROLE, SERTRALINE [Concomitant]
  2. LASIX, LISINOPRIL [Concomitant]
  3. ATORVASTATIN, GAS-X [Concomitant]
  4. VITAMIN B12, ZOSTAVAX [Concomitant]
  5. LYRICA, METOPROLOL [Concomitant]
  6. MORPHINE, PROTONIX [Concomitant]
  7. HUMIRA [Suspect]
     Active Substance: ADALIMUMAB
     Indication: CROHN^S DISEASE
     Dosage: ?          OTHER FREQUENCY:DAY 1 + 15;?
     Route: 058
     Dates: start: 20190514

REACTIONS (2)
  - Pneumonia [None]
  - Abdominal pain [None]
